FAERS Safety Report 20040755 (Version 1)
Quarter: 2021Q4

REPORT INFORMATION
  Report Type: Spontaneous
  Country: US (occurrence: None)
  Receive Date: 20211108
  Receipt Date: 20211108
  Transmission Date: 20220303
  Serious: Yes (Other)
  Sender: FDA-Public Use
  Company Number: None

PATIENT
  Age: 72 Year
  Sex: Female

DRUGS (5)
  1. AMBRISENTAN [Suspect]
     Active Substance: AMBRISENTAN
     Indication: Pulmonary arterial hypertension
     Dosage: FREQUENCY : DAILY;?
     Route: 048
     Dates: start: 20190917
  2. ADEMPAS [Concomitant]
     Active Substance: RIOCIGUAT
  3. OMEPRAZOLE [Concomitant]
     Active Substance: OMEPRAZOLE
  4. SILDENADIL [Concomitant]
  5. SILDENAFIL CITRATE [Concomitant]
     Active Substance: SILDENAFIL CITRATE

REACTIONS (2)
  - Hernia [None]
  - Large intestine polyp [None]

NARRATIVE: CASE EVENT DATE: 20211015
